FAERS Safety Report 15825525 (Version 3)
Quarter: 2019Q1

REPORT INFORMATION
  Report Type: Report from Study
  Country: US (occurrence: US)
  Receive Date: 20190115
  Receipt Date: 20190327
  Transmission Date: 20190417
  Serious: Yes (Other)
  Sender: FDA-Public Use
  Company Number: US-TAKEDA-2019TUS001014

PATIENT
  Age: 54 Year
  Sex: Female
  Weight: 54.42 kg

DRUGS (2)
  1. ACETAMINOPHEN. [Concomitant]
     Active Substance: ACETAMINOPHEN
     Indication: PAIN
     Dosage: UNK
     Route: 048
  2. VEDOLIZUMAB [Suspect]
     Active Substance: VEDOLIZUMAB
     Indication: CROHN^S DISEASE
     Dosage: 300 MILLIGRAM
     Route: 042
     Dates: start: 201705, end: 201705

REACTIONS (3)
  - Procedural intestinal perforation [Unknown]
  - Stoma site pain [Unknown]
  - Surgery [Unknown]

NARRATIVE: CASE EVENT DATE: 201711
